FAERS Safety Report 4491658-X (Version None)
Quarter: 2004Q4

REPORT INFORMATION
  Report Type: 
  Country: None (occurrence: None)
  Receive Date: 20041101
  Receipt Date: 20041015
  Transmission Date: 20050328
  Serious: Yes (Hospitalization, Disabling)
  Sender: FDA-Public Use
  Company Number: ATO-04-0875

PATIENT
  Age: 43 Year
  Sex: Female
  Weight: 120 kg

DRUGS (8)
  1. TRISENOX [Suspect]
     Indication: ACUTE PROMYELOCYTIC LEUKAEMIA
     Dosage: 17 MG (0.15 MG/KG,5X/WK FOR 5 WKS X 2), IVI
     Route: 042
     Dates: start: 20040628, end: 20040910
  2. K-DUR 10 [Concomitant]
  3. COUMADIN [Concomitant]
  4. OXYCODONE HCL [Concomitant]
  5. LEVOTHYROXINE SODIUM [Concomitant]
  6. ENDOCET [Concomitant]
  7. FLAGYL [Concomitant]
  8. TEQUIN [Concomitant]

REACTIONS (5)
  - BLISTER [None]
  - DIFFICULTY IN WALKING [None]
  - LEUKOPENIA [None]
  - NEUTROPENIA [None]
  - PALMAR-PLANTAR ERYTHRODYSAESTHESIA SYNDROME [None]
